FAERS Safety Report 16320414 (Version 1)
Quarter: 2019Q2

REPORT INFORMATION
  Report Type: Spontaneous
  Country: FR (occurrence: FR)
  Receive Date: 20190516
  Receipt Date: 20190516
  Transmission Date: 20190711
  Serious: Yes (Death, Hospitalization)
  Sender: FDA-Public Use
  Company Number: FR-MYLANLABS-2019M1045625

PATIENT
  Age: 65 Year
  Sex: Female

DRUGS (6)
  1. KEPPRA [Suspect]
     Active Substance: LEVETIRACETAM
     Indication: SEIZURE
     Dosage: 1000 MILLIGRAM, QD
     Route: 048
     Dates: start: 20180801, end: 20180914
  2. INNOHEP [Concomitant]
     Active Substance: TINZAPARIN SODIUM
  3. PREDNISOLONE. [Concomitant]
     Active Substance: PREDNISOLONE
  4. OXYNORMORO [Concomitant]
     Active Substance: OXYCODONE HYDROCHLORIDE
  5. LANSOPRAZOLE. [Suspect]
     Active Substance: LANSOPRAZOLE
     Indication: PRODUCT USED FOR UNKNOWN INDICATION
     Dosage: 15 MILLIGRAM, QD
     Route: 048
     Dates: start: 20180801, end: 20180914
  6. URBANYL [Concomitant]
     Active Substance: CLOBAZAM

REACTIONS (1)
  - Agranulocytosis [Fatal]

NARRATIVE: CASE EVENT DATE: 20180911
